FAERS Safety Report 5075610-1 (Version None)
Quarter: 2006Q3

REPORT INFORMATION
  Report Type: 
  Country: None (occurrence: None)
  Receive Date: 20060809
  Receipt Date: 20060802
  Transmission Date: 20061208
  Serious: Yes (Hospitalization)
  Sender: FDA-Public Use
  Company Number: 2006SE04208

PATIENT
  Age: 57 Year
  Sex: Male

DRUGS (3)
  1. ATACAND [Suspect]
     Indication: ESSENTIAL HYPERTENSION
     Route: 048
     Dates: start: 20060407
  2. CREON [Suspect]
     Indication: PANCREATIC INSUFFICIENCY
     Dates: start: 20041018
  3. CREON [Suspect]
     Indication: PANCREATITIS CHRONIC
     Dates: start: 20041018

REACTIONS (4)
  - ABDOMINAL PAIN [None]
  - BLOOD AMYLASE INCREASED [None]
  - CONDITION AGGRAVATED [None]
  - PANCREATITIS [None]
